FAERS Safety Report 9501451 (Version 3)
Quarter: 2013Q4

REPORT INFORMATION
  Report Type: Spontaneous
  Country: AT (occurrence: AT)
  Receive Date: 20130905
  Receipt Date: 20131009
  Transmission Date: 20140711
  Serious: Yes (Hospitalization)
  Sender: FDA-Public Use
  Company Number: AT-ELI_LILLY_AND_COMPANY-AT201308008992

PATIENT
  Age: 50 Year
  Sex: Male
  Weight: 118 kg

DRUGS (3)
  1. EFIENT [Suspect]
     Indication: ANGINA PECTORIS
     Dosage: 60 MG, SINGLE
     Route: 048
     Dates: start: 20110502, end: 20110502
  2. EFIENT [Suspect]
     Dosage: 10 MG, QD
     Route: 048
     Dates: start: 20110503
  3. ASPIRIN [Concomitant]

REACTIONS (2)
  - Angina pectoris [Recovered/Resolved]
  - Coronary artery disease [Recovered/Resolved]
